FAERS Safety Report 5402810-0 (Version None)
Quarter: 2007Q3

REPORT INFORMATION
  Report Type: 
  Country: None (occurrence: None)
  Receive Date: 20070801
  Receipt Date: 20070723
  Transmission Date: 20080115
  Serious: Yes (Other)
  Sender: FDA-Public Use
  Company Number: ES-MERCK-0707ESP00035

PATIENT
  Age: 33 Year
  Sex: Male
  Weight: 71 kg

DRUGS (3)
  1. PROPECIA [Suspect]
     Indication: ALOPECIA
     Route: 048
     Dates: start: 20000228, end: 20060922
  2. SIMVASTATIN [Concomitant]
     Indication: HYPERLIPIDAEMIA
     Route: 048
  3. PENTOXIFYLLINE [Concomitant]
     Indication: PERIPHERAL VASCULAR DISORDER
     Route: 048

REACTIONS (2)
  - INFERTILITY MALE [None]
  - SEMEN ABNORMAL [None]
